FAERS Safety Report 15155928 (Version 1)
Quarter: 2018Q3

REPORT INFORMATION
  Report Type: Spontaneous
  Country: US (occurrence: US)
  Receive Date: 20180717
  Receipt Date: 20180717
  Transmission Date: 20181010
  Serious: Yes (Death)
  Sender: FDA-Public Use
  Company Number: US-US WORLDMEDS, LLC-STA_00019822

PATIENT
  Age: 76 Year
  Sex: Male

DRUGS (1)
  1. APOMORPHINE HYDROCHLORIDE [Suspect]
     Active Substance: APOMORPHINE HYDROCHLORIDE
     Indication: PARKINSON^S DISEASE
     Dosage: 3 MG, FREQUENCY UNKNOWN

REACTIONS (3)
  - Dementia [Unknown]
  - Freezing phenomenon [Unknown]
  - Death [Fatal]

NARRATIVE: CASE EVENT DATE: 2005
